FAERS Safety Report 16233800 (Version 1)
Quarter: 2019Q2

REPORT INFORMATION
  Report Type: Spontaneous
  Country: US (occurrence: US)
  Receive Date: 20190423
  Receipt Date: 20190423
  Transmission Date: 20190711
  Serious: Yes (Hospitalization)
  Sender: FDA-Public Use
  Company Number: None

PATIENT
  Age: 27 Year
  Sex: Male
  Weight: 111.6 kg

DRUGS (5)
  1. BUPROPION. [Concomitant]
     Active Substance: BUPROPION
  2. MIRTZAPINE [Concomitant]
  3. CYMBALTA [Concomitant]
     Active Substance: DULOXETINE HYDROCHLORIDE
  4. DOXEPIN 50MG GENERIC FOR SINEQUAN [Suspect]
     Active Substance: DOXEPIN
     Indication: INSOMNIA
     Dosage: ?          QUANTITY:30 CAPSULE(S);?
     Route: 048
     Dates: end: 20190313
  5. GABAPENTIN. [Concomitant]
     Active Substance: GABAPENTIN

REACTIONS (4)
  - Skin fissures [None]
  - Swelling [None]
  - Rash [None]
  - Balanoposthitis [None]

NARRATIVE: CASE EVENT DATE: 20190313
